FAERS Safety Report 9413620 (Version 1)
Quarter: 2013Q3

REPORT INFORMATION
  Report Type: Report from Study
  Country: DE (occurrence: DE)
  Receive Date: 20130722
  Receipt Date: 20130722
  Transmission Date: 20140515
  Serious: No
  Sender: FDA-Public Use
  Company Number: DE-ROCHE-1249350

PATIENT
  Age: 47 Year
  Sex: Female
  Weight: 79 kg

DRUGS (4)
  1. CEFIXIME [Concomitant]
     Route: 065
     Dates: end: 20080601
  2. PREDNISOLON [Concomitant]
     Route: 065
     Dates: end: 20080501
  3. IBUPROFEN [Concomitant]
     Route: 065
     Dates: start: 20080531, end: 20080602
  4. OMALIZUMAB [Suspect]
     Indication: URTICARIA CHRONIC
     Route: 058
     Dates: start: 20080624

REACTIONS (2)
  - Hypersensitivity [Recovered/Resolved]
  - Arthralgia [Not Recovered/Not Resolved]
